FAERS Safety Report 15946859 (Version 1)
Quarter: 2019Q1

REPORT INFORMATION
  Report Type: Spontaneous
  Country: CO (occurrence: CO)
  Receive Date: 20190211
  Receipt Date: 20190211
  Transmission Date: 20190417
  Serious: Yes (Hospitalization)
  Sender: FDA-Public Use
  Company Number: CO-BIOMARINAP-CO-2019-121893

PATIENT
  Age: 7 Year
  Sex: Male

DRUGS (1)
  1. VIMIZIM [Suspect]
     Active Substance: ELOSULFASE ALFA
     Indication: PRODUCT USED FOR UNKNOWN INDICATION
     Dosage: 44 MILLIGRAM
     Route: 065
     Dates: start: 20170918

REACTIONS (2)
  - Procedural haemorrhage [Unknown]
  - Benign neoplasm [Unknown]

NARRATIVE: CASE EVENT DATE: 20190206
